FAERS Safety Report 5311356-X (Version None)
Quarter: 2007Q2

REPORT INFORMATION
  Report Type: 
  Country: None (occurrence: None)
  Receive Date: 20070430
  Receipt Date: 20070423
  Transmission Date: 20071010
  Serious: Yes (Other)
  Sender: FDA-Public Use
  Company Number: PHMT2007CA01111

PATIENT
  Age: 41 Year
  Sex: Male

DRUGS (9)
  1. VOLTAREN [Suspect]
     Indication: PAIN
     Dosage: 75 MG, BID
     Route: 048
     Dates: start: 20070409, end: 20070412
  2. VOLTAREN [Suspect]
     Dosage: 75 MG, BID
     Dates: start: 20070417, end: 20070424
  3. BACLOFEN [Concomitant]
  4. CELEXA [Concomitant]
  5. PANTOPRAZOLE SODIUM [Concomitant]
  6. ATIVAN [Concomitant]
  7. RISPERIDONE [Concomitant]
  8. SEROQUEL [Concomitant]
  9. TORADOL [Concomitant]

REACTIONS (4)
  - HALLUCINATION [None]
  - HEADACHE [None]
  - PSYCHOTIC DISORDER [None]
  - VISUAL DISTURBANCE [None]
